FAERS Safety Report 8455132-8 (Version None)
Quarter: 2012Q2

REPORT INFORMATION
  Report Type: 
  Country: None (occurrence: None)
  Receive Date: 20120621
  Receipt Date: 20120613
  Transmission Date: 20120825
  Serious: Yes (Hospitalization)
  Sender: FDA-Public Use
  Company Number: US-US-EMD SERONO, INC.-7140354

PATIENT
  Sex: Male

DRUGS (3)
  1. REBIF [Suspect]
     Route: 058
     Dates: start: 20120501
  2. REBIF [Suspect]
     Indication: PRODUCT USED FOR UNKNOWN INDICATION
     Route: 058
     Dates: start: 20090918, end: 20120401
  3. ASPIRIN [Concomitant]
     Indication: PREMEDICATION

REACTIONS (3)
  - CYSTITIS [None]
  - MUSCLE SPASTICITY [None]
  - HEPATIC ENZYME INCREASED [None]
